FAERS Safety Report 5320451-0 (Version None)
Quarter: 2007Q1

REPORT INFORMATION
  Report Type: 
  Country: None (occurrence: None)
  Receive Date: 20070214
  Receipt Date: 20060215
  Transmission Date: 20070707
  Serious: Yes (Other)
  Sender: FDA-Public Use
  Company Number: 2006-US-00726

PATIENT
  Age: 62 Year
  Sex: Female

DRUGS (5)
  1. FLUOXETINE HCL [Suspect]
     Indication: DEPRESSION
     Dosage: 40 MG (QD), ORAL
     Route: 048
     Dates: start: 20060101, end: 20060101
  2. METHYLPHENIDATE HCL [Concomitant]
  3. ESTRADIOL [Concomitant]
  4. TELMISARTAN [Concomitant]
  5. PRAVASTATIN SODIUM [Concomitant]

REACTIONS (1)
  - ANAPHYLACTIC REACTION [None]
